FAERS Safety Report 15672774 (Version 8)
Quarter: 2020Q1

REPORT INFORMATION
  Report Type: Report from Study
  Country: US (occurrence: US)
  Receive Date: 20181129
  Receipt Date: 20200228
  Transmission Date: 20200409
  Serious: Yes (Life-Threatening, Hospitalization, Other)
  Sender: FDA-Public Use
  Company Number: US-TESARO, INC-US-2018TSO02257

PATIENT
  Age: 75 Year
  Sex: Female

DRUGS (13)
  1. ASPIRIN. [Suspect]
     Active Substance: ASPIRIN
     Indication: PRODUCT USED FOR UNKNOWN INDICATION
     Dosage: UNK
  2. NIRAPARIB CAPSULE [Suspect]
     Active Substance: NIRAPARIB
     Dosage: 100 MG, QD IN THE EVENINGS WITHOUT/WITH FOOD
     Route: 048
  3. NIRAPARIB CAPSULE [Suspect]
     Active Substance: NIRAPARIB
     Dosage: 1 DF, QD
  4. LENVIMA [Suspect]
     Active Substance: LENVATINIB
     Indication: PRODUCT USED FOR UNKNOWN INDICATION
     Dosage: UNK
  5. MEGESTROL [Suspect]
     Active Substance: MEGESTROL
     Indication: PRODUCT USED FOR UNKNOWN INDICATION
     Dosage: UNK
  6. XARELTO [Suspect]
     Active Substance: RIVAROXABAN
     Indication: PRODUCT USE IN UNAPPROVED INDICATION
     Dosage: UNK
  7. IRON [Concomitant]
     Active Substance: IRON
     Indication: PRODUCT USED FOR UNKNOWN INDICATION
     Dosage: UNK
  8. VITAMIN B12 [Concomitant]
     Active Substance: CYANOCOBALAMIN
     Indication: PRODUCT USED FOR UNKNOWN INDICATION
     Dosage: UNK
  9. NIRAPARIB CAPSULE [Suspect]
     Active Substance: NIRAPARIB
     Indication: OVARIAN CANCER
     Dosage: 200 MG, QD
     Route: 048
     Dates: start: 20180418
  10. NIRAPARIB CAPSULE [Suspect]
     Active Substance: NIRAPARIB
     Dosage: 100 MG, QD IN THE EVENING
  11. NIRAPARIB CAPSULE [Suspect]
     Active Substance: NIRAPARIB
     Dosage: 100 MG DAILY
     Route: 048
     Dates: end: 20191217
  12. NIRAPARIB CAPSULE [Suspect]
     Active Substance: NIRAPARIB
     Dosage: 100 MG, QPM WITH FOOD
  13. NIRAPARIB CAPSULE [Suspect]
     Active Substance: NIRAPARIB
     Dosage: 100 MG, QD
     Route: 048
     Dates: end: 20180515

REACTIONS (23)
  - Anaemia [Recovered/Resolved]
  - Decreased appetite [Recovering/Resolving]
  - Intervertebral disc protrusion [Unknown]
  - Emotional distress [Unknown]
  - Contusion [Not Recovered/Not Resolved]
  - Headache [Unknown]
  - Upper limb fracture [Unknown]
  - Asthenia [Not Recovered/Not Resolved]
  - Eye disorder [Unknown]
  - Shoulder operation [Recovered/Resolved]
  - Fatigue [Not Recovered/Not Resolved]
  - Renal failure [Recovered/Resolved]
  - Blood creatinine increased [Unknown]
  - Red blood cell count decreased [Unknown]
  - Lacrimal disorder [Unknown]
  - Vision blurred [Unknown]
  - Hypoaesthesia [Not Recovered/Not Resolved]
  - Somnolence [Not Recovered/Not Resolved]
  - Product dose omission [Unknown]
  - Platelet count decreased [Not Recovered/Not Resolved]
  - Malaise [Unknown]
  - Nausea [Not Recovered/Not Resolved]
  - Musculoskeletal discomfort [Recovered/Resolved]

NARRATIVE: CASE EVENT DATE: 20190107
